FAERS Safety Report 9319839 (Version 1)
Quarter: 2012Q4

REPORT INFORMATION
  Report Type: Spontaneous
  Country: US (occurrence: None)
  Receive Date: 20121004
  Receipt Date: 20121004
  Transmission Date: 20130627
  Serious: Yes (Other)
  Sender: FDA-Public Use
  Company Number: 218682

PATIENT
  Age: 77 Year
  Sex: Female

DRUGS (4)
  1. PICATO [Suspect]
     Indication: ACTINIC KERATOSIS
     Route: 061
     Dates: start: 20120703, end: 20120704
  2. LEVOTHYROXINE (LEVOTHYROXINE) (75 MCG) [Concomitant]
  3. TRICOR(ADENOSINE) [Concomitant]
  4. OMEPRAZOLE(OMEPRAZOLE) [Concomitant]

REACTIONS (11)
  - Application site vesicles [None]
  - Application site pain [None]
  - Application site erythema [None]
  - Swelling face [None]
  - Eye swelling [None]
  - Pyrexia [None]
  - Staphylococcal infection [None]
  - Malaise [None]
  - Asthenia [None]
  - Streptococcus test positive [None]
  - Skin irritation [None]
